FAERS Safety Report 25581373 (Version 1)
Quarter: 2025Q3

REPORT INFORMATION
  Report Type: Spontaneous
  Country: US (occurrence: US)
  Receive Date: 20250718
  Receipt Date: 20250718
  Transmission Date: 20251020
  Serious: Yes (Hospitalization)
  Sender: NOVO NORDISK
  Company Number: US-NOVOPROD-1377503

PATIENT
  Age: 27 Year
  Sex: Female
  Weight: 81.179 kg

DRUGS (1)
  1. WEGOVY [Suspect]
     Active Substance: SEMAGLUTIDE
     Indication: Product used for unknown indication
     Dosage: 2.4 MG EVERY WEEK
     Dates: start: 20240508, end: 20250214

REACTIONS (3)
  - Cholelithiasis [Recovering/Resolving]
  - Cholecystitis [Recovering/Resolving]
  - Hepatic enzyme decreased [Unknown]

NARRATIVE: CASE EVENT DATE: 20250201
